FAERS Safety Report 7526228-X (Version None)
Quarter: 2011Q2

REPORT INFORMATION
  Report Type: 
  Country: None (occurrence: None)
  Receive Date: 20110527
  Receipt Date: 20110518
  Transmission Date: 20111010
  Serious: Yes (Death)
  Sender: FDA-Public Use
  Company Number: UTC-007261

PATIENT
  Age: 56 Year
  Sex: Female
  Weight: 36.8 kg

DRUGS (3)
  1. REVATIO [Concomitant]
  2. TRACLEER [Concomitant]
  3. REMODULIN [Suspect]
     Indication: PULMONARY HYPERTENSION
     Dosage: 50.4 UG/KG (0.035 UG/KG,1 IN 1 MIN), SUBCUTANEOUS
     Route: 058
     Dates: start: 20110118

REACTIONS (1)
  - DYSPNOEA [None]
